FAERS Safety Report 20445179 (Version 1)
Quarter: 2022Q1

REPORT INFORMATION
  Report Type: Spontaneous
  Country: FR (occurrence: FR)
  Receive Date: 20220208
  Receipt Date: 20220208
  Transmission Date: 20220424
  Serious: No
  Sender: FDA-Public Use
  Company Number: FR-LUPIN PHARMACEUTICALS INC.-2022-01659

PATIENT
  Age: 6 Year
  Sex: Female

DRUGS (5)
  1. AMLODIPINE [Suspect]
     Active Substance: AMLODIPINE BESYLATE
     Indication: Renovascular hypertension
     Dosage: 10 MG, QD
     Route: 048
  2. AMLODIPINE [Suspect]
     Active Substance: AMLODIPINE BESYLATE
     Dosage: 5 MG, QD
     Route: 048
     Dates: start: 201903
  3. NICARDIPINE [Suspect]
     Active Substance: NICARDIPINE
     Indication: Renovascular hypertension
     Dosage: 10 MG, QD
     Route: 048
     Dates: start: 201708
  4. NICARDIPINE [Suspect]
     Active Substance: NICARDIPINE
     Dosage: 5 MG, QD (INITIALLY, THE DOSE WAS REDUCED TO 5MG DAILY AND EVENTUALLY, THE DRUG WAS STOPPED)
     Route: 048
  5. PERINDOPRIL [Suspect]
     Active Substance: PERINDOPRIL
     Indication: Renovascular hypertension
     Dosage: 5 MG, QD
     Route: 048

REACTIONS (4)
  - Hypertrichosis [Not Recovered/Not Resolved]
  - Flushing [Unknown]
  - Asthenia [Unknown]
  - Headache [Unknown]
